FAERS Safety Report 4510837-6 (Version None)
Quarter: 2004Q4

REPORT INFORMATION
  Report Type: 
  Country: None (occurrence: None)
  Receive Date: 20041122
  Receipt Date: 20041104
  Transmission Date: 20050328
  Serious: Yes (Hospitalization)
  Sender: FDA-Public Use
  Company Number: 2004CG02281

PATIENT
  Age: 72 Year
  Sex: Female
  Weight: 139 kg

DRUGS (11)
  1. ATENOLOL [Suspect]
     Indication: ESSENTIAL HYPERTENSION
     Dosage: 50 MG QD PO
     Route: 048
  2. FLUDEX [Suspect]
     Indication: ESSENTIAL HYPERTENSION
     Dosage: 1.5 MG QD PO
     Route: 048
     Dates: end: 20040923
  3. ENELAPRIL [Suspect]
     Indication: ESSENTIAL HYPERTENSION
     Dosage: 20 MG QD PO
     Route: 048
     Dates: end: 20040923
  4. BI-PROFENID [Suspect]
     Dosage: 150 MG BID PO
     Route: 048
     Dates: start: 20040921, end: 20040923
  5. TOPALGIC [Concomitant]
  6. DI-ANTALVIC [Concomitant]
  7. NUBAIN [Concomitant]
  8. FRAGMIN [Concomitant]
  9. ASPIRIN [Concomitant]
  10. ELISOR [Concomitant]
  11. FOSAMAX [Concomitant]

REACTIONS (4)
  - ANAEMIA [None]
  - DRUG INTERACTION [None]
  - HIP FRACTURE [None]
  - RENAL FAILURE ACUTE [None]
